FAERS Safety Report 24731472 (Version 1)
Quarter: 2024Q4

REPORT INFORMATION
  Report Type: Spontaneous
  Country: US (occurrence: US)
  Receive Date: 20241213
  Receipt Date: 20241213
  Transmission Date: 20250115
  Serious: No
  Sender: RECKITT BENCKISER
  Company Number: US-PROD-AS2-212756134-20-24-USA-RB-0008515

PATIENT
  Age: 81 Year
  Sex: Female

DRUGS (2)
  1. DELSYM [Suspect]
     Active Substance: DEXTROMETHORPHAN
     Indication: Cough
     Dosage: TOOK 10 ML
     Route: 048
     Dates: start: 20240902, end: 20240904
  2. DELSYM [Suspect]
     Active Substance: DEXTROMETHORPHAN
     Indication: Cough
     Dosage: TOOK 10 ML ONCE IN THE MORNING ON THE 1ST DAY AND 2 10 ML ON THE 2ND AND 3RD DAY
     Route: 048
     Dates: start: 20240902, end: 20240904

REACTIONS (1)
  - Eye swelling [Not Recovered/Not Resolved]
